FAERS Safety Report 8534627 (Version 3)
Quarter: 2013Q4

REPORT INFORMATION
  Report Type: Spontaneous
  Country: FR (occurrence: FR)
  Receive Date: 20120427
  Receipt Date: 20131106
  Transmission Date: 20140711
  Serious: Yes (Hospitalization, Other)
  Sender: FDA-Public Use
  Company Number: FR-MSD-1204USA03563

PATIENT
  Age: 65 Year
  Sex: Female

DRUGS (12)
  1. HYZAAR [Suspect]
     Indication: HYPERTENSION
     Dosage: 1 DF, QD
     Route: 048
     Dates: end: 20120402
  2. MANTADIX [Suspect]
     Dosage: 100 MG, BID
     Route: 048
  3. MANTADIX [Suspect]
     Dosage: 100 MG, QD
     Dates: start: 20120604
  4. SIFROL [Suspect]
     Indication: RESTLESS LEGS SYNDROME
     Dosage: 0.35 MG, TID
     Route: 048
  5. SEROPLEX [Concomitant]
     Dosage: 5 MG, QD
     Route: 048
     Dates: start: 201109, end: 20120410
  6. IMUREL [Concomitant]
     Dosage: 50 MG, BID
     Route: 048
     Dates: start: 2004, end: 20120211
  7. SPECIAFOLDINE [Concomitant]
     Dosage: 10 MG, QD
     Route: 048
     Dates: end: 20120504
  8. RIVOTRIL [Concomitant]
     Dosage: UNK UNK, QD
     Route: 048
  9. RIVOTRIL [Concomitant]
     Dosage: 10 DF, UNK
     Route: 048
     Dates: start: 20120504, end: 20120627
  10. DAFALGAN [Concomitant]
     Dosage: 1 G, TID
     Route: 048
  11. LEVOTHYROX [Concomitant]
     Indication: HYPOTHYROIDISM
     Dosage: 175 ?G, QD
     Route: 048
  12. LEVOTHYROX [Concomitant]
     Dosage: 12.5 ?G, QD
     Route: 048

REACTIONS (1)
  - Rhabdomyolysis [Not Recovered/Not Resolved]
